FAERS Safety Report 5477102-4 (Version None)
Quarter: 2007Q4

REPORT INFORMATION
  Report Type: 
  Country: None (occurrence: None)
  Receive Date: 20071003
  Receipt Date: 20071003
  Transmission Date: 20080405
  Serious: Yes (Hospitalization)
  Sender: FDA-Public Use
  Company Number: None

PATIENT
  Sex: Female
  Weight: 94.3482 kg

DRUGS (5)
  1. CUBICIN [Suspect]
     Indication: STAPHYLOCOCCAL INFECTION
     Dosage: 500 MG DAILY IV
     Route: 042
     Dates: start: 20070423, end: 20070430
  2. CUBICIN [Suspect]
     Indication: VAGINAL ABSCESS
     Dosage: 500 MG DAILY IV
     Route: 042
     Dates: start: 20070423, end: 20070430
  3. VANCOMYCIN [Concomitant]
  4. PRENATAL VITAMINS [Concomitant]
  5. OXYCODONE AND ACETAMINOPHEN [Concomitant]

REACTIONS (5)
  - BLOOD CREATINE PHOSPHOKINASE INCREASED [None]
  - DEHYDRATION [None]
  - DRUG EXPOSURE DURING PREGNANCY [None]
  - LEUKOCYTOSIS [None]
  - LIVER FUNCTION TEST ABNORMAL [None]
